FAERS Safety Report 4442002-5 (Version None)
Quarter: 2004Q3

REPORT INFORMATION
  Report Type: 
  Country: None (occurrence: None)
  Receive Date: 20040901
  Receipt Date: 20040817
  Transmission Date: 20050211
  Serious: Yes (Hospitalization)
  Sender: FDA-Public Use
  Company Number: 2004-BP-05121NB

PATIENT
  Age: 58 Year
  Sex: Male

DRUGS (5)
  1. MOBIC [Suspect]
     Indication: BACK PAIN
     Dosage: 10 MG
     Route: 048
     Dates: start: 20040608, end: 20040612
  2. TENORMIN [Concomitant]
  3. BLOPRESS (CANDESARTAN CILEXETIL) (TA) [Concomitant]
  4. CONIEL (BENIDIPINE HYDROCHLORIDE) (TA) [Concomitant]
  5. BUFFERIN (TA) [Concomitant]

REACTIONS (3)
  - CIRCULATORY COLLAPSE [None]
  - GASTRIC ULCER HAEMORRHAGE [None]
  - SHOCK [None]
